FAERS Safety Report 24464895 (Version 1)
Quarter: 2024Q4

REPORT INFORMATION
  Report Type: Report from Study
  Country: US (occurrence: US)
  Receive Date: 20241018
  Receipt Date: 20241018
  Transmission Date: 20250114
  Serious: No
  Sender: ROCHE
  Company Number: US-ROCHE-3508846

PATIENT
  Age: 67 Year
  Sex: Female

DRUGS (2)
  1. XOLAIR [Suspect]
     Active Substance: OMALIZUMAB
     Indication: Urticaria
     Dosage: INJECTION IN BOTH ARMS IN THE UPPER BACK OF THE ARMS
     Route: 058
     Dates: start: 20231212
  2. PREDNISONE [Concomitant]
     Active Substance: PREDNISONE
     Dosage: 8 OF THE 5MG PREDNISONE TABLETS DAILY ;ONGOING: NO
     Dates: start: 20231221

REACTIONS (4)
  - Rash [Recovering/Resolving]
  - Pain [Unknown]
  - Product complaint [Unknown]
  - Drug ineffective [Unknown]

NARRATIVE: CASE EVENT DATE: 20240209
